FAERS Safety Report 22281077 (Version 2)
Quarter: 2023Q2

REPORT INFORMATION
  Report Type: Spontaneous
  Country: US (occurrence: US)
  Receive Date: 20230504
  Receipt Date: 20230519
  Transmission Date: 20230722
  Serious: No
  Sender: FDA-Public Use
  Company Number: US-SA-SAC20230503000413

PATIENT
  Age: 26 Year
  Sex: Female
  Weight: 61.23 kg

DRUGS (1)
  1. DUPIXENT [Suspect]
     Active Substance: DUPILUMAB
     Indication: Dermatitis atopic
     Dosage: 300 MG, QOW
     Route: 058
     Dates: start: 202301

REACTIONS (6)
  - Headache [Recovering/Resolving]
  - Hypertension [Recovering/Resolving]
  - Vision blurred [Recovering/Resolving]
  - Injection site swelling [Not Recovered/Not Resolved]
  - Injection site pruritus [Unknown]
  - Injection site pain [Not Recovered/Not Resolved]

NARRATIVE: CASE EVENT DATE: 20230428
